FAERS Safety Report 13721121 (Version 1)
Quarter: 2017Q3

REPORT INFORMATION
  Report Type: Spontaneous
  Country: US (occurrence: US)
  Receive Date: 20170706
  Receipt Date: 20170706
  Transmission Date: 20171127
  Serious: Yes (Life-Threatening)
  Sender: FDA-Public Use
  Company Number: None

PATIENT
  Age: 62 Year
  Sex: Female
  Weight: 58.97 kg

DRUGS (4)
  1. LEVOFLOXACIN 750MG TAB [Suspect]
     Active Substance: LEVOFLOXACIN
     Indication: LUNG INFECTION
     Dosage: DOSE - 1 TAB BY MOUTH FOR 14 DAYS
     Route: 048
     Dates: start: 20170425, end: 20170427
  2. PAIN PILL [Concomitant]
     Active Substance: UNSPECIFIED INGREDIENT
  3. ALBUTEROL INHALER [Concomitant]
     Active Substance: ALBUTEROL
  4. SLEEP PILL [Concomitant]

REACTIONS (13)
  - Joint stiffness [None]
  - Musculoskeletal disorder [None]
  - Nausea [None]
  - Vomiting [None]
  - Headache [None]
  - Nightmare [None]
  - Abnormal dreams [None]
  - Asthenia [None]
  - Tremor [None]
  - Lethargy [None]
  - Myalgia [None]
  - Dizziness [None]
  - Arthralgia [None]

NARRATIVE: CASE EVENT DATE: 20170425
